FAERS Safety Report 19108692 (Version 1)
Quarter: 2021Q2

REPORT INFORMATION
  Report Type: Spontaneous
  Country: US (occurrence: US)
  Receive Date: 20210408
  Receipt Date: 20210408
  Transmission Date: 20210717
  Serious: Yes (Other)
  Sender: FDA-Public Use
  Company Number: US-JNJFOC-20210408766

PATIENT

DRUGS (1)
  1. DURAGESIC [Suspect]
     Active Substance: FENTANYL
     Indication: PRODUCT USED FOR UNKNOWN INDICATION
     Route: 062

REACTIONS (6)
  - Product prescribing error [Unknown]
  - Respiratory depression [Unknown]
  - Sedation complication [Unknown]
  - Somnolence [Unknown]
  - Product dispensing error [Unknown]
  - Wrong technique in product usage process [Unknown]
